FAERS Safety Report 9845776 (Version 1)
Quarter: 2014Q1

REPORT INFORMATION
  Report Type: Spontaneous
  Country: US (occurrence: US)
  Receive Date: 20140127
  Receipt Date: 20140127
  Transmission Date: 20141002
  Serious: No
  Sender: FDA-Public Use
  Company Number: US-PFIZER INC-2014024652

PATIENT
  Age: 82 Year
  Sex: Male
  Weight: 80.73 kg

DRUGS (5)
  1. LYRICA [Suspect]
     Indication: DIABETIC NEUROPATHY
     Dosage: 75 MG, 3X/DAY
     Dates: start: 2013
  2. LYRICA [Suspect]
     Indication: HYPOAESTHESIA
  3. COUMADIN [Concomitant]
     Indication: ANTICOAGULANT THERAPY
     Dosage: 3 MG, DAILY
     Route: 048
  4. COUMADIN [Concomitant]
     Dosage: 1.5 DF, UNK
  5. PLAVIX [Concomitant]
     Dosage: UNK

REACTIONS (1)
  - Rash [Not Recovered/Not Resolved]
